FAERS Safety Report 5094182-9 (Version None)
Quarter: 2006Q3

REPORT INFORMATION
  Report Type: 
  Country: None (occurrence: None)
  Receive Date: 20060831
  Receipt Date: 20060821
  Transmission Date: 20061208
  Serious: Yes (Other)
  Sender: FDA-Public Use
  Company Number: PHEH2006US10711

PATIENT
  Age: 84 Year
  Sex: Female

DRUGS (7)
  1. ZOMETA [Suspect]
     Indication: OSTEOPOROSIS
     Dates: start: 20060301
  2. LIPITOR [Concomitant]
  3. CARDIZEM [Concomitant]
  4. ASPIRIN [Concomitant]
  5. SINGULAIR [Concomitant]
  6. ZYRTEC [Concomitant]
  7. SYNTHROID [Concomitant]

REACTIONS (6)
  - ACTIVITIES OF DAILY LIVING IMPAIRED [None]
  - ANOSMIA [None]
  - ARTHRALGIA [None]
  - ASTHENIA [None]
  - BACK PAIN [None]
  - CONVULSION [None]
